FAERS Safety Report 4577127-7 (Version None)
Quarter: 2005Q2

REPORT INFORMATION
  Report Type: 
  Country: None (occurrence: None)
  Receive Date: 20050207
  Receipt Date: 20050121
  Transmission Date: 20051028
  Serious: Yes (Hospitalization)
  Sender: FDA-Public Use
  Company Number: WAES 0312AUS00032

PATIENT
  Age: 71 Year
  Sex: Female

DRUGS (11)
  1. ZETIA [Suspect]
     Indication: MIXED HYPERLIPIDAEMIA
     Dosage: 10 MG/DAILY/PO
     Route: 048
     Dates: start: 20030526, end: 20030824
  2. ZETIA [Suspect]
     Indication: MIXED HYPERLIPIDAEMIA
     Dosage: 10 MG/DAILY/PO
     Route: 048
     Dates: start: 20030825, end: 20031120
  3. ZETIA [Suspect]
     Indication: MIXED HYPERLIPIDAEMIA
     Dosage: 10 MG/DAILY/PO
     Route: 048
     Dates: start: 20031209, end: 20040113
  4. FENOFIBRATE [Suspect]
     Indication: MIXED HYPERLIPIDAEMIA
     Dosage: 160 MG DAILY PO
     Route: 048
     Dates: start: 20030526, end: 20030824
  5. FENOFIBRATE [Suspect]
     Indication: MIXED HYPERLIPIDAEMIA
     Dosage: 160 MG DAILY PO
     Route: 048
     Dates: start: 20030825, end: 20031120
  6. FENOFIBRATE [Suspect]
     Indication: MIXED HYPERLIPIDAEMIA
     Dosage: 160 MG DAILY PO
     Route: 048
     Dates: start: 20031209, end: 20040113
  7. ASPIRIN [Concomitant]
  8. CELECOXIB [Concomitant]
  9. CITALOPRAM HYDROBROMIDE [Concomitant]
  10. ESTRADIOL [Concomitant]
  11. OXAZEPAM [Concomitant]

REACTIONS (9)
  - ADHESION [None]
  - CHOLECYSTITIS [None]
  - CHOLELITHIASIS [None]
  - COLLAPSE OF LUNG [None]
  - HEPATIC STEATOSIS [None]
  - INTERSTITIAL LUNG DISEASE [None]
  - LUNG CONSOLIDATION [None]
  - PLEURAL EFFUSION [None]
  - PROCEDURAL COMPLICATION [None]
